FAERS Safety Report 5989667-4 (Version None)
Quarter: 2008Q4

REPORT INFORMATION
  Report Type: 
  Country: None (occurrence: None)
  Receive Date: 20081210
  Receipt Date: 20081203
  Transmission Date: 20090506
  Serious: Yes (Death, Hospitalization)
  Sender: FDA-Public Use
  Company Number: JP-GILEAD-2008-0019357

PATIENT
  Age: 54 Year
  Sex: Female

DRUGS (2)
  1. HEPSERA [Suspect]
     Indication: HEPATITIS B
     Dates: start: 20040930
  2. LAMIVUDINE [Concomitant]
     Route: 048
     Dates: start: 20010901

REACTIONS (1)
  - DRUG INEFFECTIVE [None]
